FAERS Safety Report 10396635 (Version 1)
Quarter: 2014Q1

REPORT INFORMATION
  Report Type: Spontaneous
  Country: US (occurrence: None)
  Receive Date: 20130606
  Receipt Date: 20130606
  Transmission Date: 20141002
  Serious: No
  Sender: FDA-Public Use
  Company Number: 2013BAX005117

PATIENT
  Age: 61 Year
  Sex: Female
  Weight: 73.48 kg

DRUGS (4)
  1. GAMMAGARD [Suspect]
     Indication: IMMUNODEFICIENCY COMMON VARIABLE
     Dosage: 1 GM (7 GM, 1 IN 1 WK), SUBCUTANEOUS
     Route: 058
     Dates: start: 20121023
  2. VITAMIN D3 (COLECALCIFEROL) [Concomitant]
  3. CARVEDILOL (CARVEDILOL) [Concomitant]
  4. OMEPRAZOLE (OMEPRAZOLE) [Concomitant]

REACTIONS (2)
  - Aspartate aminotransferase increased [None]
  - Alanine aminotransferase increased [None]
